FAERS Safety Report 19204988 (Version 13)
Quarter: 2023Q1

REPORT INFORMATION
  Report Type: Report from Study
  Country: CN (occurrence: None)
  Receive Date: 20210503
  Receipt Date: 20230217
  Transmission Date: 20230418
  Serious: Yes (Hospitalization)
  Sender: FDA-Public Use
  Company Number: CN-ROCHE-2815379

PATIENT
  Age: 68 Year
  Sex: Male
  Weight: 72 kg

DRUGS (48)
  1. ATEZOLIZUMAB [Suspect]
     Active Substance: ATEZOLIZUMAB
     Indication: Non-small cell lung cancer stage IV
     Dosage: DATE OF MOST RECENT DOSE OF STUDY DRUG PRIOR TO AE 01/FEB/2021?DATE OF MOST RECENT DOSE OF STUDY DRU
     Route: 041
     Dates: start: 20210201
  2. BEVACIZUMAB [Suspect]
     Active Substance: BEVACIZUMAB
     Indication: Non-small cell lung cancer stage IV
     Dosage: BEVACIZUMAB WILL BE ADMINISTERED BY IV INFUSION AT A DOSE OF 15 MG/KG ON DAY 1 OF EACH 21-DAY CYCLE.
     Route: 041
     Dates: start: 20210201
  3. CARBOPLATIN [Suspect]
     Active Substance: CARBOPLATIN
     Indication: Non-small cell lung cancer stage IV
     Dosage: CARBOPLATIN WILL BE ADMINISTERED BY IV INFUSION TO ACHIEVE AN INITIAL TARGET AUC OF 6 MG/ML/MIN?DATE
     Route: 042
     Dates: start: 20210201
  4. PEMETREXED [Suspect]
     Active Substance: PEMETREXED
     Indication: Non-small cell lung cancer stage IV
     Dosage: PEMETREXED WILL BE ADMINISTERED BY IV INFUSION AT A DOSE OF 500 MG/M2?DATE OF MOST RECENT DOSE OF ST
     Route: 042
     Dates: start: 20210201
  5. DEXAMETHASONE SODIUM PHOSPHATE [Concomitant]
     Active Substance: DEXAMETHASONE SODIUM PHOSPHATE
     Route: 042
     Dates: start: 20210430, end: 20210430
  6. DEXAMETHASONE SODIUM PHOSPHATE [Concomitant]
     Active Substance: DEXAMETHASONE SODIUM PHOSPHATE
     Route: 042
     Dates: start: 20210419, end: 20210419
  7. DEXAMETHASONE SODIUM PHOSPHATE [Concomitant]
     Active Substance: DEXAMETHASONE SODIUM PHOSPHATE
     Dates: start: 20210430, end: 20210430
  8. DEXAMETHASONE SODIUM PHOSPHATE [Concomitant]
     Active Substance: DEXAMETHASONE SODIUM PHOSPHATE
     Dates: start: 20210611, end: 20210611
  9. DEXAMETHASONE [Concomitant]
     Active Substance: DEXAMETHASONE
     Dates: start: 20210131, end: 20210202
  10. DEXAMETHASONE [Concomitant]
     Active Substance: DEXAMETHASONE
     Dates: start: 20210316, end: 20210318
  11. DEXAMETHASONE [Concomitant]
     Active Substance: DEXAMETHASONE
     Route: 048
     Dates: start: 20210406, end: 20210408
  12. DEXAMETHASONE [Concomitant]
     Active Substance: DEXAMETHASONE
     Dates: start: 20210507, end: 20210509
  13. DEXAMETHASONE [Concomitant]
     Active Substance: DEXAMETHASONE
     Dates: start: 20210527, end: 20210529
  14. TROPISETRON HYDROCHLORIDE [Concomitant]
     Active Substance: TROPISETRON HYDROCHLORIDE
     Dates: start: 20210201, end: 20210203
  15. TROPISETRON HYDROCHLORIDE [Concomitant]
     Active Substance: TROPISETRON HYDROCHLORIDE
     Dates: start: 20210223, end: 20210225
  16. TROPISETRON HYDROCHLORIDE [Concomitant]
     Active Substance: TROPISETRON HYDROCHLORIDE
     Dates: start: 20210317, end: 20210319
  17. TROPISETRON HYDROCHLORIDE [Concomitant]
     Active Substance: TROPISETRON HYDROCHLORIDE
     Dates: start: 20210407, end: 20210409
  18. TROPISETRON HYDROCHLORIDE [Concomitant]
     Active Substance: TROPISETRON HYDROCHLORIDE
     Dates: start: 20210508, end: 20210512
  19. TROPISETRON HYDROCHLORIDE [Concomitant]
     Active Substance: TROPISETRON HYDROCHLORIDE
     Dates: start: 20210528, end: 20210530
  20. ASPIRIN [Concomitant]
     Active Substance: ASPIRIN
     Indication: Cerebral infarction
     Dates: start: 20210415, end: 20210416
  21. ATORVASTATIN CALCIUM [Concomitant]
     Active Substance: ATORVASTATIN CALCIUM
     Indication: Cerebral infarction
     Dates: start: 20210415
  22. CITICOLINE SODIUM [Concomitant]
     Active Substance: CITICOLINE SODIUM
     Indication: Cerebral infarction
     Dates: start: 20210415, end: 20210419
  23. ALBUMIN HUMAN [Concomitant]
     Active Substance: ALBUMIN HUMAN
     Indication: Hypoalbuminaemia
     Dates: start: 20210508, end: 20210512
  24. ALBUMIN HUMAN [Concomitant]
     Active Substance: ALBUMIN HUMAN
     Dates: start: 20210609, end: 20210610
  25. PENCICLOVIR [Concomitant]
     Active Substance: PENCICLOVIR
     Indication: Pneumonia
  26. DOXOFYLLINE [Concomitant]
     Active Substance: DOXOFYLLINE
     Indication: Pneumonia
     Dates: start: 20210608, end: 20210611
  27. AMBROXOL [Concomitant]
     Active Substance: AMBROXOL
     Indication: Pneumonia
     Dates: start: 20210608, end: 20210610
  28. MEROPENEM [Concomitant]
     Active Substance: MEROPENEM
     Indication: Pneumonia
     Dates: start: 20210608, end: 20210612
  29. OMEPRAZOLE SODIUM [Concomitant]
     Active Substance: OMEPRAZOLE SODIUM
     Dates: start: 20210608, end: 20210612
  30. METHYLPREDNISOLONE SODIUM SUCCINATE [Concomitant]
     Active Substance: METHYLPREDNISOLONE SODIUM SUCCINATE
     Indication: Pneumonia
     Dates: start: 20210608, end: 20210612
  31. GLUTATHIONE [Concomitant]
     Active Substance: GLUTATHIONE
     Indication: Hepatic failure
     Dates: start: 20210609, end: 20210612
  32. SILYBIN [Concomitant]
     Dates: start: 20210609, end: 20210612
  33. MONTMORILLONITE [Concomitant]
     Active Substance: MONTMORILLONITE
     Dates: start: 20210609, end: 20210611
  34. HEPARIN SODIUM [Concomitant]
     Active Substance: HEPARIN SODIUM
  35. GANCICLOVIR [Concomitant]
     Active Substance: GANCICLOVIR
     Indication: Pneumonia
     Dates: start: 20210610, end: 20210612
  36. MOXIFLOXACIN [Concomitant]
     Active Substance: MOXIFLOXACIN
     Indication: Pneumonia
     Dates: start: 20210610, end: 20210612
  37. BUDESONIDE [Concomitant]
     Active Substance: BUDESONIDE
     Indication: Cough
     Dates: start: 20210608, end: 20210611
  38. TORSEMIDE [Concomitant]
     Active Substance: TORSEMIDE
     Dates: start: 20210608, end: 20210608
  39. FUROSEMIDE [Concomitant]
     Active Substance: FUROSEMIDE
     Indication: Myocarditis
     Dates: start: 20210608, end: 20210611
  40. SODIUM BICARBONATE [Concomitant]
     Active Substance: SODIUM BICARBONATE
     Dates: start: 20210608, end: 20210610
  41. ADRENALIN [Concomitant]
     Active Substance: EPINEPHRINE
     Dates: start: 20210608, end: 20210608
  42. MIDAZOLAM [Concomitant]
     Active Substance: MIDAZOLAM
     Dates: start: 20210608, end: 20210612
  43. DOPAMINE [Concomitant]
     Active Substance: DOPAMINE HYDROCHLORIDE
     Dates: start: 20210608, end: 20210608
  44. REMIFENTANIL [Concomitant]
     Active Substance: REMIFENTANIL
     Dates: start: 20210608, end: 20210611
  45. INSULIN NOS [Concomitant]
     Active Substance: INSULIN NOS
     Dosage: QUICK ACTING INSULIN INJECTION
     Dates: start: 20210609, end: 20210609
  46. CALCIUM GLUCONATE [Concomitant]
     Active Substance: CALCIUM GLUCONATE
     Dates: start: 20210608, end: 20210611
  47. THROMBOPOIETIN [Concomitant]
     Active Substance: THROMBOPOIETIN
     Indication: Thrombocytopenia
     Dates: start: 20210610, end: 20210611
  48. SODIUM CHLORIDE [Concomitant]
     Active Substance: SODIUM CHLORIDE
     Indication: Pneumonia
     Dates: start: 20210610, end: 20210612

REACTIONS (2)
  - Platelet count decreased [Recovered/Resolved]
  - Anaemia [Not Recovered/Not Resolved]

NARRATIVE: CASE EVENT DATE: 20210222
